FAERS Safety Report 7313033-2 (Version None)
Quarter: 2011Q1

REPORT INFORMATION
  Report Type: 
  Country: None (occurrence: None)
  Receive Date: 20110225
  Receipt Date: 20110217
  Transmission Date: 20110831
  Serious: Yes (Hospitalization)
  Sender: FDA-Public Use
  Company Number: US-BIOGENIDEC-2011BI006492

PATIENT
  Age: 66 Year
  Sex: Female
  Weight: 70 kg

DRUGS (1)
  1. TYSABRI [Suspect]
     Indication: MULTIPLE SCLEROSIS
     Route: 042
     Dates: start: 20070315

REACTIONS (7)
  - URINARY RETENTION [None]
  - MULTIPLE SCLEROSIS RELAPSE [None]
  - NEPHROLITHIASIS [None]
  - ASTHENIA [None]
  - UROSEPSIS [None]
  - NEUROGENIC BLADDER [None]
  - TACHYCARDIA [None]
